FAERS Safety Report 13217192 (Version 1)
Quarter: 2017Q1

REPORT INFORMATION
  Report Type: Other
  Country: PT (occurrence: PT)
  Receive Date: 20170210
  Receipt Date: 20170210
  Transmission Date: 20170428
  Serious: Yes (Other)
  Sender: FDA-Public Use
  Company Number: PT-XIROMED, LLC-1062984

PATIENT
  Age: 39 Year
  Sex: Female

DRUGS (2)
  1. DESLORATADINE. [Concomitant]
     Active Substance: DESLORATADINE
  2. LANSOPRAZOLE. [Suspect]
     Active Substance: LANSOPRAZOLE
     Indication: GASTROOESOPHAGEAL REFLUX DISEASE
     Dates: start: 2010, end: 2010

REACTIONS (2)
  - Type IV hypersensitivity reaction [Recovered/Resolved]
  - Drug cross-reactivity [Recovered/Resolved]

NARRATIVE: CASE EVENT DATE: 2010
